FAERS Safety Report 8788844 (Version 1)
Quarter: 2012Q4

REPORT INFORMATION
  Report Type: 
  Country: GB (occurrence: GB)
  Receive Date: 20120915
  Receipt Date: 20120915
  Transmission Date: 20130627
  Serious: Yes (Life-Threatening)
  Sender: FDA-Public Use
  Company Number: GB-ABBOTT-12P-167-0979907-00

PATIENT
  Sex: Male

DRUGS (2)
  1. SODIUM VALPROATE [Suspect]
     Indication: BIPOLAR DISORDER
     Dosage: 1700 once a day
     Dates: start: 20120319
  2. ZUCLOPENTHIXOL [Suspect]
     Indication: BIPOLAR DISORDER
     Dosage: 200  once a week
     Dates: start: 20120521, end: 20120724

REACTIONS (1)
  - Pulmonary embolism [Recovering/Resolving]
